FAERS Safety Report 24680182 (Version 2)
Quarter: 2024Q4

REPORT INFORMATION
  Report Type: Spontaneous
  Country: US (occurrence: US)
  Receive Date: 20241129
  Receipt Date: 20241204
  Transmission Date: 20250114
  Serious: No
  Sender: ABBVIE
  Company Number: US-ABBVIE-6018909

PATIENT
  Age: 29 Year
  Sex: Female

DRUGS (2)
  1. BOTOX COSMETIC [Suspect]
     Active Substance: ONABOTULINUMTOXINA
     Indication: Skin wrinkling
     Dosage: TIME INTERVAL: AS NECESSARY: RECEIVED 10U INTO FRONTALIS OVER 14 INJECTION POINTS
     Route: 065
     Dates: start: 20241104, end: 20241104
  2. BOTOX COSMETIC [Suspect]
     Active Substance: ONABOTULINUMTOXINA
     Indication: Skin wrinkling
     Dosage: TIME INTERVAL: AS NECESSARY: 20U IN GLABELLAR LINES USING STANDARD 5 POINT INJECTION
     Route: 065
     Dates: start: 20241104, end: 20241104

REACTIONS (2)
  - Skin indentation [Unknown]
  - Urticaria [Unknown]

NARRATIVE: CASE EVENT DATE: 20241101
